FAERS Safety Report 5888798-7 (Version None)
Quarter: 2008Q3

REPORT INFORMATION
  Report Type: 
  Country: None (occurrence: None)
  Receive Date: 20080919
  Receipt Date: 20080916
  Transmission Date: 20090109
  Serious: Yes (Life-Threatening)
  Sender: FDA-Public Use
  Company Number: FR-JNJFOC-20080804839

PATIENT
  Sex: Female

DRUGS (10)
  1. RISPERDAL [Suspect]
     Indication: ANXIETY
     Route: 048
  2. MINIRIN [Suspect]
     Indication: MICTURITION URGENCY
     Route: 045
     Dates: start: 20080516, end: 20080525
  3. NEXIUM [Suspect]
     Indication: DRUG USE FOR UNKNOWN INDICATION
     Route: 048
  4. RIVOTRIL [Suspect]
     Indication: ANXIETY
     Route: 048
  5. MIRTAZAPINE [Suspect]
     Indication: DEPRESSION
     Route: 048
  6. CERIS [Concomitant]
     Indication: MICTURITION URGENCY
     Route: 048
     Dates: start: 20080516, end: 20080525
  7. ASPIRIN [Concomitant]
     Route: 065
  8. TRANSIPEG [Concomitant]
     Route: 065
  9. ACETAMINOPHEN W/ CODEINE [Concomitant]
  10. SODIUM CHLORIDE [Concomitant]

REACTIONS (2)
  - FALL [None]
  - HYPONATRAEMIA [None]
